FAERS Safety Report 6340217-2 (Version None)
Quarter: 2009Q3

REPORT INFORMATION
  Report Type: 
  Country: None (occurrence: None)
  Receive Date: 20090902
  Receipt Date: 20090828
  Transmission Date: 20100115
  Serious: Yes (Other)
  Sender: FDA-Public Use
  Company Number: 1000007273

PATIENT
  Age: 59 Year
  Sex: Female

DRUGS (17)
  1. SAVELLA [Suspect]
     Indication: FIBROMYALGIA
     Dosage: 12.5 MG (12.5 MG, 1 IN 1 D), ORAL; 25 MG (12.5 MG, 2 IN1 D), ORAL; 50 MG (25 MG, 2 IN  1 D), ORAL
     Route: 048
     Dates: start: 20090616, end: 20090616
  2. SAVELLA [Suspect]
     Indication: FIBROMYALGIA
     Dosage: 12.5 MG (12.5 MG, 1 IN 1 D), ORAL; 25 MG (12.5 MG, 2 IN1 D), ORAL; 50 MG (25 MG, 2 IN  1 D), ORAL
     Route: 048
     Dates: start: 20090617, end: 20090618
  3. SAVELLA [Suspect]
     Indication: FIBROMYALGIA
     Dosage: 12.5 MG (12.5 MG, 1 IN 1 D), ORAL; 25 MG (12.5 MG, 2 IN1 D), ORAL; 50 MG (25 MG, 2 IN  1 D), ORAL
     Route: 048
     Dates: start: 20090619, end: 20090622
  4. SAVELLA [Suspect]
     Indication: FIBROMYALGIA
     Dosage: 100 MG (50 MG, 2 IN 1 D), ORAL
     Route: 048
     Dates: start: 20090623, end: 20090703
  5. CYMBALTA [Concomitant]
  6. AMITRIPTYLINE [Concomitant]
  7. HYDROCODONE BITARTRATE [Concomitant]
  8. LUNESTA [Concomitant]
  9. PLAVIX [Concomitant]
  10. SYNTHROID [Concomitant]
  11. REGLAN [Concomitant]
  12. METOPROLOL TARTRATE [Concomitant]
  13. NIFEDIPINE [Concomitant]
  14. OMEPRAZOLE [Concomitant]
  15. HYDROCHLOROTHIAZIDE [Concomitant]
  16. LIPITOR [Concomitant]
  17. CARVEDILOL [Concomitant]

REACTIONS (1)
  - HOMICIDAL IDEATION [None]
